FAERS Safety Report 9252088 (Version 1)
Quarter: 2013Q2

REPORT INFORMATION
  Report Type: Spontaneous
  Country: US (occurrence: US)
  Receive Date: 20130424
  Receipt Date: 20130424
  Transmission Date: 20140414
  Serious: No
  Sender: FDA-Public Use
  Company Number: US-VERTEX PHARMACEUTICALS INC.-2013-005231

PATIENT
  Age: 49 Year
  Sex: Female
  Weight: 65 kg

DRUGS (9)
  1. INCIVEK [Suspect]
     Indication: HEPATITIS C
     Dosage: 750 MG, TID
     Route: 048
     Dates: start: 20130316
  2. RIBAVIRIN [Suspect]
     Indication: HEPATITIS C
     Dosage: 400MG AM, 600MG PM
     Route: 048
     Dates: start: 20130316
  3. PEGASYS [Suspect]
     Indication: HEPATITIS C
     Dosage: 180 ?G, QW
     Route: 058
     Dates: start: 20130316
  4. TRIAMTERENE [Concomitant]
     Indication: HYPERTENSION
     Dosage: UNK, QD
     Route: 048
  5. ALBUTEROL [Concomitant]
     Indication: ASTHMA
     Dosage: UNK, PRN
  6. ADVAIR [Concomitant]
     Indication: ASTHMA
     Dosage: UNK, PRN
  7. ZINC [Concomitant]
     Indication: MEDICAL DIET
     Dosage: UNK, QD
     Route: 048
  8. VITAMIN D [Concomitant]
     Indication: MEDICAL DIET
     Dosage: UNK, QD
     Route: 048
  9. CALCIUM [Concomitant]
     Indication: MEDICAL DIET
     Dosage: UNK, QD
     Route: 048

REACTIONS (7)
  - Dry mouth [Not Recovered/Not Resolved]
  - Fatigue [Not Recovered/Not Resolved]
  - Anaemia [Not Recovered/Not Resolved]
  - Diarrhoea [Not Recovered/Not Resolved]
  - Anorectal discomfort [Not Recovered/Not Resolved]
  - Anal pruritus [Not Recovered/Not Resolved]
  - Nausea [Not Recovered/Not Resolved]
